FAERS Safety Report 9391487 (Version 6)
Quarter: 2013Q4

REPORT INFORMATION
  Report Type: Spontaneous
  Country: US (occurrence: US)
  Receive Date: 20130709
  Receipt Date: 20131206
  Transmission Date: 20140711
  Serious: Yes (Other)
  Sender: FDA-Public Use
  Company Number: US-COVIDIEN/TYCO HEALTHCARE/MALLINCKRODT-T201302829

PATIENT
  Age: 59 Year
  Sex: Female
  Weight: 48.73 kg

DRUGS (12)
  1. FENTANYL TRANSDERMAL SYSTEM [Suspect]
     Indication: PAIN
     Dosage: 25 UG/HR, Q 72 HOURS
     Route: 062
     Dates: start: 201306, end: 201306
  2. FENTANYL TRANSDERMAL SYSTEM [Suspect]
     Indication: MUSCULOSKELETAL DISCOMFORT
     Dosage: 50 MCG.HR Q 72 HOURS
     Route: 062
     Dates: start: 201306
  3. OXCARBAZEPINE [Suspect]
     Indication: MOOD SWINGS
     Dosage: 300 MG, BID
  4. CLONAZEPAM [Concomitant]
     Indication: ANXIETY
     Dosage: 1 MG, BID
     Route: 048
  5. DEPAKOTE [Concomitant]
     Indication: AFFECTIVE DISORDER
     Dosage: 500 MG, QD
     Route: 048
  6. DEXILANT [Concomitant]
     Indication: GASTROOESOPHAGEAL REFLUX DISEASE
     Dosage: 30 MG, QD
     Route: 048
  7. LEVOTHYROXINE [Concomitant]
     Indication: HYPOTHYROIDISM
     Dosage: 25 ?G, QD
     Route: 048
  8. CYCLOBENZAPRINE [Concomitant]
     Indication: MUSCLE RELAXANT THERAPY
     Dosage: 5-10MG, BID, PRN
     Route: 048
  9. VICODIN ES [Concomitant]
     Indication: PAIN
     Dosage: 7.5/500 MG, TID, PRN
     Route: 048
  10. KLONOPIN [Concomitant]
     Indication: ANXIETY
     Dosage: 1 MG, BID
     Route: 048
     Dates: start: 201306
  11. CYMBALTA [Concomitant]
     Indication: DEPRESSION
     Dosage: UNK
     Route: 065
  12. CYMBALTA [Concomitant]
     Indication: PAIN

REACTIONS (18)
  - Confusional state [Recovered/Resolved]
  - Depression [Unknown]
  - Incorrect drug administration duration [Unknown]
  - Contusion [Unknown]
  - Fall [Recovered/Resolved]
  - Weight decreased [Recovered/Resolved]
  - Fatigue [Not Recovered/Not Resolved]
  - Nausea [Not Recovered/Not Resolved]
  - Diarrhoea [Not Recovered/Not Resolved]
  - Pain [Not Recovered/Not Resolved]
  - Mood swings [Unknown]
  - Abdominal discomfort [Recovered/Resolved]
  - Decreased appetite [Recovered/Resolved]
  - Increased appetite [Not Recovered/Not Resolved]
  - Drug effect decreased [Not Recovered/Not Resolved]
  - Product adhesion issue [Unknown]
  - Wrong technique in drug usage process [Not Recovered/Not Resolved]
  - Application site pruritus [Not Recovered/Not Resolved]
